FAERS Safety Report 9705032 (Version 1)
Quarter: 2013Q4

REPORT INFORMATION
  Report Type: Spontaneous
  Country: US (occurrence: US)
  Receive Date: 20131122
  Receipt Date: 20131122
  Transmission Date: 20140711
  Serious: Yes (Other)
  Sender: FDA-Public Use
  Company Number: US-MERCK-1311USA009268

PATIENT
  Age: 85 Year
  Sex: Female

DRUGS (1)
  1. TIMOPTIC [Suspect]
     Indication: INTRAOCULAR PRESSURE INCREASED
     Dosage: ONE DROP EACH EYE, BID
     Route: 047
     Dates: start: 2012

REACTIONS (2)
  - Visual field defect [Unknown]
  - Visual acuity reduced [Unknown]
